FAERS Safety Report 11519826 (Version 1)
Quarter: 2015Q3

REPORT INFORMATION
  Report Type: Spontaneous
  Country: FR (occurrence: FR)
  Receive Date: 20150918
  Receipt Date: 20150918
  Transmission Date: 20151125
  Serious: Yes (Hospitalization)
  Sender: FDA-Public Use
  Company Number: FR-009507513-1509FRA004913

PATIENT
  Age: 62 Year
  Sex: Female

DRUGS (12)
  1. LAMISIL [Suspect]
     Active Substance: TERBINAFINE HYDROCHLORIDE
     Dosage: 250 MG, QD
     Route: 048
     Dates: start: 20150321, end: 20150521
  2. TEMESTA [Concomitant]
     Active Substance: LORAZEPAM
     Dosage: UNK
  3. METFORMIN [Concomitant]
     Active Substance: METFORMIN HYDROCHLORIDE
     Dosage: 500 MG, BID
  4. LEVOTHYROX [Concomitant]
     Active Substance: LEVOTHYROXINE
     Dosage: UNK
  5. TIMOPTOL LP 0.50%, COLLYRE EN SOLUTION [Concomitant]
     Active Substance: TIMOLOL MALEATE
     Dosage: 0.5 UNK, UNK
     Route: 047
  6. NAABAK [Concomitant]
     Dosage: UNK
     Dates: start: 20150330, end: 20150430
  7. ANAFRANIL [Suspect]
     Active Substance: CLOMIPRAMINE HYDROCHLORIDE
     Dosage: 75 MG, BID
  8. COVERSYL (PERINDOPRIL ARGININE) [Concomitant]
     Active Substance: PERINDOPRIL
     Dosage: UNK
  9. PROCORALAN [Concomitant]
     Active Substance: IVABRADINE
     Dosage: UNK
  10. INEGY [Suspect]
     Active Substance: EZETIMIBE\SIMVASTATIN
     Dosage: 1 DF, QD
     Route: 048
     Dates: end: 20150603
  11. STILNOX [Concomitant]
     Active Substance: ZOLPIDEM TARTRATE
     Dosage: UNK
  12. VICTOZA [Concomitant]
     Active Substance: LIRAGLUTIDE
     Dosage: 0.6 ML, QPM (IN THE EVENING)

REACTIONS (1)
  - Liver injury [Unknown]

NARRATIVE: CASE EVENT DATE: 201505
